FAERS Safety Report 9591599 (Version 1)
Quarter: 2013Q4

REPORT INFORMATION
  Report Type: Spontaneous
  Country: US (occurrence: US)
  Receive Date: 20131003
  Receipt Date: 20131003
  Transmission Date: 20140711
  Serious: No
  Sender: FDA-Public Use
  Company Number: US-AMGEN-USASP2012081579

PATIENT
  Age: 26 Year
  Sex: Female
  Weight: 64.85 kg

DRUGS (1)
  1. ENBREL [Suspect]
     Indication: PSORIASIS
     Dosage: 50 MG, UNK
     Route: 058

REACTIONS (2)
  - Urticaria [Recovered/Resolved]
  - Drug hypersensitivity [Unknown]
